FAERS Safety Report 5718352-9 (Version None)
Quarter: 2008Q2

REPORT INFORMATION
  Report Type: 
  Country: None (occurrence: None)
  Receive Date: 20080425
  Receipt Date: 20070809
  Transmission Date: 20081010
  Serious: Yes (Disabling)
  Sender: FDA-Public Use
  Company Number: A0658268A

PATIENT
  Age: 37 Year
  Sex: Female

DRUGS (5)
  1. DEXEDRINE [Suspect]
     Indication: ATTENTION DEFICIT/HYPERACTIVITY DISORDER
     Dosage: 4CAP TWICE PER DAY
     Route: 048
  2. CYMBALTA [Concomitant]
  3. BUPROPION SR [Concomitant]
  4. CARDURA [Concomitant]
  5. ADDERALL 10 [Concomitant]

REACTIONS (2)
  - DRUG INEFFECTIVE [None]
  - PHARMACEUTICAL PRODUCT COMPLAINT [None]
